FAERS Safety Report 20262623 (Version 1)
Quarter: 2021Q4

REPORT INFORMATION
  Report Type: Spontaneous
  Country: PL (occurrence: PL)
  Receive Date: 20211231
  Receipt Date: 20211231
  Transmission Date: 20220303
  Serious: Yes (Life-Threatening, Hospitalization, Other)
  Sender: FDA-Public Use
  Company Number: PL-NOVOPROD-878605

PATIENT
  Age: 29 Year
  Sex: Female

DRUGS (6)
  1. OZEMPIC [Interacting]
     Active Substance: SEMAGLUTIDE
     Indication: Obesity
     Dosage: 0.5 MG WEEKLY
     Route: 058
  2. BUPROPION [Interacting]
     Active Substance: BUPROPION
     Indication: Obesity
     Dosage: 150 MG, QD (THROUGH FIRST 6 DAYS)
     Route: 048
  3. BUPROPION [Interacting]
     Active Substance: BUPROPION
     Dosage: 300 MG, QD
     Route: 048
  4. BUPROPION HYDROCHLORIDE\NALTREXONE HYDROCHLORIDE [Interacting]
     Active Substance: BUPROPION HYDROCHLORIDE\NALTREXONE HYDROCHLORIDE
     Indication: Obesity
     Dosage: 2 TABLETS CONTAINING 8 MG OF NALTREXONE AND 90 MG OF BUPROPION PER DAY, AFTER MAIN MEAL
     Route: 058
  5. VORTIOXETINE [Interacting]
     Active Substance: VORTIOXETINE
     Indication: Obesity
     Dosage: 10 MG, QD (TAKEN AFTER LAST MEAL)
     Route: 048
  6. ONDANSETRON [Interacting]
     Active Substance: ONDANSETRON
     Indication: Obesity
     Dosage: 16 MG, QD
     Route: 048

REACTIONS (12)
  - Serotonin syndrome [Recovering/Resolving]
  - Renal failure [Unknown]
  - Body temperature increased [Unknown]
  - Hyperhidrosis [Unknown]
  - Chills [Unknown]
  - Headache [Unknown]
  - Muscle spasms [Unknown]
  - Urine output decreased [Unknown]
  - Myopathy [Unknown]
  - Myoglobinuria [Unknown]
  - Myalgia [Unknown]
  - Off label use [Unknown]
